FAERS Safety Report 6581263-3 (Version None)
Quarter: 2010Q1

REPORT INFORMATION
  Report Type: 
  Country: None (occurrence: None)
  Receive Date: 20100203
  Receipt Date: 20100126
  Transmission Date: 20100710
  Serious: Yes (Other)
  Sender: FDA-Public Use
  Company Number: 2010US000213

PATIENT
  Age: 55 Year
  Sex: Male
  Weight: 100 kg

DRUGS (7)
  1. AMBISOME [Suspect]
     Indication: INFECTION
     Dosage: 1 G, UID/QD, IV NOS
     Route: 042
     Dates: start: 20100121, end: 20100121
  2. MIDAZOLAM HCL [Concomitant]
  3. SUFENTA PRESERVATIVE FREE [Concomitant]
  4. NOZINAN (LEVOMEPROMAZINE MALEATE) [Concomitant]
  5. TICARCILLIN (TICARCILLIN) [Concomitant]
  6. FLAGYL [Concomitant]
  7. INEXIUM (ESOMEPRAZOLE SODIUM) [Concomitant]

REACTIONS (3)
  - DEHYDRATION [None]
  - GLYCOSURIA [None]
  - HYPERGLYCAEMIA [None]
